FAERS Safety Report 20315237 (Version 1)
Quarter: 2022Q1

REPORT INFORMATION
  Report Type: Other
  Country: US (occurrence: None)
  Receive Date: 20220110
  Receipt Date: 20220110
  Transmission Date: 20220423
  Serious: No
  Sender: FDA-Public Use
  Company Number: US-ROCHE-2788893

PATIENT
  Age: 24 Year
  Sex: Female

DRUGS (1)
  1. RITUXIMAB [Suspect]
     Active Substance: RITUXIMAB
     Indication: Alloimmunisation
     Route: 042

REACTIONS (5)
  - Nausea [Unknown]
  - Headache [Unknown]
  - Hypotonia [Unknown]
  - Sinus tachycardia [Unknown]
  - Maternal exposure during pregnancy [Unknown]
